FAERS Safety Report 7365542-8 (Version None)
Quarter: 2011Q1

REPORT INFORMATION
  Report Type: 
  Country: None (occurrence: None)
  Receive Date: 20110322
  Receipt Date: 20091026
  Transmission Date: 20110831
  Serious: Yes (Other)
  Sender: FDA-Public Use
  Company Number: US-BAYER-200937705NA

PATIENT
  Sex: Female

DRUGS (8)
  1. TRASYLOL [Suspect]
     Indication: CARDIAC OPERATION
     Route: 042
     Dates: start: 20051122
  2. HUMULIN N [Concomitant]
     Dosage: UNK UNK, UNK
     Route: 065
     Dates: start: 20040506
  3. ACTOS [Concomitant]
     Dosage: 30 MG DAILY
     Route: 048
     Dates: start: 20030108
  4. ZOCOR [Concomitant]
     Dosage: 40 MG DAILY
     Route: 048
     Dates: start: 20030414
  5. MOBIC [Concomitant]
     Dosage: 7.5 MG, TID
     Route: 048
     Dates: start: 20040506
  6. GLUCOVANCE [Concomitant]
     Dosage: 5/500 MG
     Route: 048
     Dates: start: 20030414
  7. AVANDIA [Concomitant]
     Dosage: 8 MG DAILY
     Route: 048
     Dates: start: 20030414
  8. LISINOPRIL AND HYDROCHLOROTHIAZIDE [Concomitant]
     Dosage: 20-25 MG DAILY
     Route: 048
     Dates: start: 20040506

REACTIONS (5)
  - RENAL FAILURE ACUTE [None]
  - INJURY [None]
  - RENAL FAILURE [None]
  - PAIN [None]
  - UNEVALUABLE EVENT [None]
